FAERS Safety Report 5298189-8 (Version None)
Quarter: 2007Q1

REPORT INFORMATION
  Report Type: 
  Country: None (occurrence: None)
  Receive Date: 20070205
  Receipt Date: 20051212
  Transmission Date: 20070707
  Serious: Yes (Other)
  Sender: FDA-Public Use
  Company Number: US200512001079

PATIENT
  Age: 90 Year
  Sex: Female
  Weight: 83.7 kg

DRUGS (6)
  1. EVISTA [Suspect]
     Dosage: 60 MG, DAILY (1/D)
     Dates: end: 20051123
  2. PLAVIX [Concomitant]
  3. COLACE (DOCUSATE SODIUM) [Concomitant]
  4. PREVACID [Concomitant]
  5. SYNTHROID [Concomitant]
  6. BUSPAR /AUS/ (BUSPIRONE HYDROCHLORIDE) [Concomitant]

REACTIONS (2)
  - DEEP VEIN THROMBOSIS [None]
  - OEDEMA PERIPHERAL [None]
